FAERS Safety Report 24285905 (Version 1)
Quarter: 2024Q3

REPORT INFORMATION
  Report Type: Spontaneous
  Country: GB (occurrence: GB)
  Receive Date: 20240905
  Receipt Date: 20240905
  Transmission Date: 20241017
  Serious: Yes (Disabling, Congenital Anomaly, Other)
  Sender: TORRENT
  Company Number: None

PATIENT
  Sex: Male

DRUGS (1)
  1. QUETIAPINE [Suspect]
     Active Substance: QUETIAPINE
     Indication: Product used for unknown indication
     Dosage: UNKNOWN
     Route: 064

REACTIONS (11)
  - Speech disorder developmental [Unknown]
  - Ataxia [Unknown]
  - Learning disorder [Unknown]
  - Emotional disorder [Unknown]
  - Motor developmental delay [Unknown]
  - Hypoacusis [Not Recovered/Not Resolved]
  - Developmental delay [Not Recovered/Not Resolved]
  - Social (pragmatic) communication disorder [Unknown]
  - Behaviour disorder [Unknown]
  - Foetal exposure during pregnancy [Unknown]
  - Hearing aid user [Unknown]

NARRATIVE: CASE EVENT DATE: 20120403
